FAERS Safety Report 24399008 (Version 1)
Quarter: 2024Q4

REPORT INFORMATION
  Report Type: Spontaneous
  Country: NO (occurrence: NO)
  Receive Date: 20241004
  Receipt Date: 20241004
  Transmission Date: 20250114
  Serious: Yes (Disabling)
  Sender: DAIICHI
  Company Number: None

PATIENT
  Age: 51 Year
  Sex: Female

DRUGS (1)
  1. ENHERTU [Suspect]
     Active Substance: FAM-TRASTUZUMAB DERUXTECAN-NXKI
     Indication: Breast cancer
     Dosage: 500 MG, ONCE EVERY 3 WK, 500 MG IV EVERY 3RD WEEKCONTINUED USE OF MEDICINAL PRODUCT
     Route: 042
     Dates: start: 20240209

REACTIONS (2)
  - Diplopia [Not Recovered/Not Resolved]
  - Visual impairment [Recovering/Resolving]

NARRATIVE: CASE EVENT DATE: 20240725
